FAERS Safety Report 9352771 (Version 1)
Quarter: 2013Q2

REPORT INFORMATION
  Report Type: Spontaneous
  Country: US (occurrence: None)
  Receive Date: 20130614
  Receipt Date: 20130614
  Transmission Date: 20140414
  Serious: No
  Sender: FDA-Public Use
  Company Number: None

PATIENT
  Age: 54 Year
  Sex: Female
  Weight: 90.72 kg

DRUGS (1)
  1. METAPROLOL SUCCINATE [Suspect]
     Indication: HYPERTENSION
     Dates: start: 20130408, end: 20130529

REACTIONS (1)
  - Alopecia [None]
